FAERS Safety Report 7268222-2 (Version None)
Quarter: 2011Q1

REPORT INFORMATION
  Report Type: 
  Country: None (occurrence: None)
  Receive Date: 20110201
  Receipt Date: 20110124
  Transmission Date: 20110831
  Serious: Yes (Hospitalization)
  Sender: FDA-Public Use
  Company Number: PHHY2011US05241

PATIENT
  Sex: Male

DRUGS (1)
  1. TOBI [Suspect]
     Indication: CYSTIC FIBROSIS
     Dosage: 300 MG, 1 AMPOULE TWICE DAILY 28 DAYS ON AND 28 DAYS OFF
     Dates: start: 20081103

REACTIONS (1)
  - LUNG INFECTION [None]
